FAERS Safety Report 8405834 (Version 14)
Quarter: 2014Q3

REPORT INFORMATION
  Report Type: Report from Study
  Country: CA (occurrence: CA)
  Receive Date: 20120214
  Receipt Date: 20140917
  Transmission Date: 20150326
  Serious: Yes (Hospitalization, Other)
  Sender: FDA-Public Use
  Company Number: CA-ROCHE-1039485

PATIENT
  Age: 70 Year
  Sex: Male
  Weight: 90 kg

DRUGS (12)
  1. XELODA [Suspect]
     Active Substance: CAPECITABINE
     Indication: METASTATIC GASTRIC CANCER
     Route: 048
     Dates: start: 201111, end: 20130110
  2. HERCEPTIN [Suspect]
     Active Substance: TRASTUZUMAB
     Dosage: UNKNOWN DOSE FOR EVERY WEEK WITH 1 WEEK OFF EVERY 3 WEEKS FOR CHEMO
     Route: 042
     Dates: start: 201210, end: 20130110
  3. HERCEPTIN [Suspect]
     Active Substance: TRASTUZUMAB
     Dosage: RESTARTED
     Route: 042
     Dates: start: 20130117, end: 20140320
  4. XELODA [Suspect]
     Active Substance: CAPECITABINE
     Dosage: RESTARTED
     Route: 048
     Dates: start: 20130117
  5. KADCYLA [Suspect]
     Active Substance: ADO-TRASTUZUMAB EMTANSINE
     Indication: GASTROINTESTINAL CARCINOMA
     Route: 042
     Dates: start: 20140410, end: 20140814
  6. XELODA [Suspect]
     Active Substance: CAPECITABINE
     Dosage: UNKNOWN MG Q WEEKLY WITH ONE WEEK OFF EVERY 3 WEEKS FOR CHEMO
     Route: 048
     Dates: start: 201210
  7. CISPLATIN. [Suspect]
     Active Substance: CISPLATIN
     Indication: PRODUCT USED FOR UNKNOWN INDICATION
     Route: 065
     Dates: end: 201202
  8. HERCEPTIN [Suspect]
     Active Substance: TRASTUZUMAB
     Indication: METASTATIC GASTRIC CANCER
     Route: 042
     Dates: start: 20111031
  9. HERCEPTIN [Suspect]
     Active Substance: TRASTUZUMAB
     Route: 042
     Dates: end: 20140403
  10. XELODA [Suspect]
     Active Substance: CAPECITABINE
     Route: 048
     Dates: start: 201206, end: 201310
  11. DIOVAN [Concomitant]
     Active Substance: VALSARTAN
  12. TAXOL [Concomitant]
     Active Substance: PACLITAXEL
     Route: 065
     Dates: start: 20131101, end: 20140228

REACTIONS (21)
  - Disease progression [Not Recovered/Not Resolved]
  - Oedema [Unknown]
  - Liver disorder [Not Recovered/Not Resolved]
  - Blood creatinine increased [Unknown]
  - Neutrophil count decreased [Unknown]
  - Metastases to liver [Not Recovered/Not Resolved]
  - Pyrexia [Unknown]
  - Malaise [Unknown]
  - Dehydration [Recovered/Resolved]
  - Haematochezia [Unknown]
  - Device related infection [Unknown]
  - Burning sensation [Recovering/Resolving]
  - Drug ineffective [Unknown]
  - Diarrhoea [Recovered/Resolved]
  - Renal impairment [Unknown]
  - Fatigue [Not Recovered/Not Resolved]
  - Hepatic mass [Unknown]
  - Tumour marker increased [Recovered/Resolved]
  - Clostridium difficile infection [Recovered/Resolved]
  - Off label use [Unknown]
  - Fatigue [Unknown]

NARRATIVE: CASE EVENT DATE: 201202
